FAERS Safety Report 9565674 (Version 2)
Quarter: 2014Q1

REPORT INFORMATION
  Report Type: Spontaneous
  Country: US (occurrence: US)
  Receive Date: 20130930
  Receipt Date: 20140103
  Transmission Date: 20141002
  Serious: No
  Sender: FDA-Public Use
  Company Number: US-009507513-1309USA014472

PATIENT
  Age: 65 Year
  Sex: Female
  Weight: 66.67 kg

DRUGS (1)
  1. CLARITIN [Suspect]
     Indication: SEASONAL ALLERGY
     Dosage: 10 MG, HS
     Route: 048
     Dates: start: 20130912

REACTIONS (2)
  - Muscle spasms [Recovering/Resolving]
  - Nausea [Unknown]
